FAERS Safety Report 5014473-7 (Version None)
Quarter: 2006Q2

REPORT INFORMATION
  Report Type: 
  Country: None (occurrence: None)
  Receive Date: 20060531
  Receipt Date: 20060522
  Transmission Date: 20061013
  Serious: Yes (Death)
  Sender: FDA-Public Use
  Company Number: SE-JNJFOC-20060505052

PATIENT
  Sex: Male

DRUGS (18)
  1. HALDOL [Suspect]
     Route: 065
  2. HALDOL [Suspect]
     Indication: PSYCHOTIC DISORDER
     Route: 065
  3. THERALEN [Suspect]
     Indication: DRUG USE FOR UNKNOWN INDICATION
     Route: 048
  4. PROPAVAN [Suspect]
     Indication: DRUG USE FOR UNKNOWN INDICATION
  5. CYKLOKAPRON [Suspect]
  6. CYKLOKAPRON [Suspect]
  7. VANCOCIN [Suspect]
     Indication: INFECTION
  8. CIPROXIN [Suspect]
     Indication: INFECTION
  9. KONAKION [Concomitant]
  10. INDERAL [Concomitant]
  11. ORALOVITE [Concomitant]
  12. ORALOVITE [Concomitant]
  13. ORALOVITE [Concomitant]
  14. ORALOVITE [Concomitant]
  15. ORALOVITE [Concomitant]
  16. LAXOBERAL [Concomitant]
  17. OXASCAND [Concomitant]
  18. LAKTULOS [Concomitant]

REACTIONS (13)
  - ANXIETY [None]
  - BLOOD ALBUMIN DECREASED [None]
  - BLOOD GLUCOSE INCREASED [None]
  - BLOOD POTASSIUM INCREASED [None]
  - CARDIAC FAILURE [None]
  - CARDIOMYOPATHY ALCOHOLIC [None]
  - DRUG TOXICITY [None]
  - ELECTROCARDIOGRAM QT PROLONGED [None]
  - EPISTAXIS [None]
  - HAEMOGLOBIN INCREASED [None]
  - INFECTION [None]
  - PLATELET COUNT DECREASED [None]
  - SUDDEN DEATH [None]
